FAERS Safety Report 12281433 (Version 1)
Quarter: 2016Q2

REPORT INFORMATION
  Report Type: Spontaneous
  Country: None (occurrence: None)
  Receive Date: 20160418
  Receipt Date: 20160418
  Transmission Date: 20160815
  Serious: No
  Sender: FDA-Public Use
  Company Number: None

PATIENT
  Age: 68 Year
  Sex: Female
  Weight: 71.67 kg

DRUGS (3)
  1. LEVOFLOXACIN ZYDUS [Suspect]
     Active Substance: LEVOFLOXACIN
     Indication: PNEUMONIA
     Dosage: 7 TABLETS ONCE A DAY
     Route: 048
     Dates: start: 20160212, end: 20160219
  2. VITAMIN B12 [Concomitant]
     Active Substance: CYANOCOBALAMIN
  3. VITAMIN D [Concomitant]
     Active Substance: CHOLECALCIFEROL

REACTIONS (3)
  - Tendonitis [None]
  - Paraesthesia [None]
  - Toothache [None]

NARRATIVE: CASE EVENT DATE: 20160212
